FAERS Safety Report 12944269 (Version 2)
Quarter: 2016Q4

REPORT INFORMATION
  Report Type: Report from Study
  Country: AU (occurrence: AU)
  Receive Date: 20161115
  Receipt Date: 20161202
  Transmission Date: 20170207
  Serious: Yes (Other)
  Sender: FDA-Public Use
  Company Number: AU-VERTEX PHARMACEUTICALS-2016-006306

PATIENT
  Age: 15 Year
  Sex: Male

DRUGS (16)
  1. NEXIUM [Concomitant]
     Active Substance: ESOMEPRAZOLE MAGNESIUM
  2. CREON [Concomitant]
     Active Substance: PANCRELIPASE AMYLASE\PANCRELIPASE LIPASE\PANCRELIPASE PROTEASE
     Dosage: 12-15 DAILY
  3. ORKAMBI [Suspect]
     Active Substance: IVACAFTOR\LUMACAFTOR
     Indication: CYSTIC FIBROSIS
     Dosage: 400/125 MG, BID
     Route: 048
     Dates: start: 20160926
  4. ENSURE [Concomitant]
     Active Substance: AMINO ACIDS\DEXTROSE\ELECTROLYTES NOS\SOYBEAN OIL\VITAMINS
     Dosage: 250ML (WITH OLIVE 1200ML AT NIGHT + 30ML IN MORNING) WITH 880ML OVERNIGHT
  5. AZTREONAM. [Concomitant]
     Active Substance: AZTREONAM
     Dosage: 2 G, 8 HOURLY
     Route: 042
  6. PULMOZYME [Concomitant]
     Active Substance: DORNASE ALFA
     Dosage: 2.5 MG, NOCTE
  7. SALT [Concomitant]
     Active Substance: SODIUM CHLORIDE
     Dosage: 6-8 DF, QD
  8. VITAMIN K [Concomitant]
     Active Substance: PHYTONADIONE
     Dosage: 1 DF, TWICE A WEEK
  9. INSULIN [Concomitant]
     Active Substance: INSULIN NOS
  10. AZITHROMYCIN ANHYDROUS. [Concomitant]
     Active Substance: AZITHROMYCIN ANHYDROUS
  11. CLOFAZIMINE [Concomitant]
     Active Substance: CLOFAZIMINE
     Dosage: 50 MG, BID
  12. BRONCHITOL [Concomitant]
     Dosage: 10 DF, BID
  13. VITAMIN E [Concomitant]
     Active Substance: .ALPHA.-TOCOPHEROL
     Dosage: .6 ML, QD
  14. AMIKACIN [Concomitant]
     Active Substance: AMIKACIN
     Dosage: 500 MG, BID
     Route: 055
  15. COLISTIN [Concomitant]
     Active Substance: COLISTIN
     Dosage: 2 MILLION UNIT, BID
     Route: 055
  16. PENTAVITE [Concomitant]
     Dosage: 2.5 ML, QD

REACTIONS (6)
  - Dyspnoea [Recovered/Resolved]
  - Nausea [Recovered/Resolved]
  - Abdominal pain [Recovered/Resolved]
  - Back pain [Recovered/Resolved]
  - Respiration abnormal [Recovered/Resolved]
  - Chest pain [Recovered/Resolved]

NARRATIVE: CASE EVENT DATE: 20160926
